FAERS Safety Report 8224304-X (Version None)
Quarter: 2012Q1

REPORT INFORMATION
  Report Type: 
  Country: None (occurrence: None)
  Receive Date: 20120321
  Receipt Date: 20120314
  Transmission Date: 20120608
  Serious: Yes (Other)
  Sender: FDA-Public Use
  Company Number: PHHY2011US26112

PATIENT
  Sex: Female
  Weight: 145 kg

DRUGS (24)
  1. RECLAST [Suspect]
     Dosage: 5 MG, UNK
     Route: 042
     Dates: start: 20110330
  2. LUNESTA [Concomitant]
     Indication: INSOMNIA
     Dosage: 1 DF, EVERY EVENING
     Route: 048
     Dates: start: 20111111
  3. VITAMIN D [Concomitant]
     Dosage: 1 DF, UNK
     Route: 048
  4. WARFARIN SODIUM [Concomitant]
     Dosage: 1 DF, QD
     Route: 048
     Dates: start: 20111128
  5. PROTONIX [Concomitant]
     Dosage: 1 DF, UNK
     Route: 048
     Dates: start: 20111128
  6. BONIVA [Suspect]
  7. PERIOGARD [Concomitant]
     Dosage: 10 DF, BID
     Dates: start: 20110627
  8. NITROSTAT [Concomitant]
     Dosage: 1 DF, PRN
     Route: 060
     Dates: start: 20110420
  9. BENADRYL [Concomitant]
     Dosage: 1 DF, UNK
     Route: 048
  10. MORPHINE SULFATE [Concomitant]
     Dosage: 1 DF, GIVEN THROUGH PAIN PUMP
  11. RECLAST [Suspect]
     Indication: OSTEOPOROSIS
     Dosage: 5 MG, UNK
     Route: 042
  12. CALTRATE 600 + D [Concomitant]
     Dosage: 2 DF, QD
     Route: 048
  13. FOSAMAX [Suspect]
  14. PROVENTIL-HFA [Concomitant]
     Dosage: 2 PUFFS
     Dates: start: 20100215
  15. ZINC SULFATE [Concomitant]
     Dosage: 1 DF, UNK
     Route: 048
  16. VIVELLE-DOT [Concomitant]
     Dosage: 1 DF, QW2
     Route: 062
     Dates: start: 20111128
  17. CYANOCOBALAMIN [Concomitant]
     Dosage: 1 CC, MONTHLY
     Route: 030
     Dates: start: 20100910
  18. NEURONTIN [Concomitant]
     Dosage: 1 DF, UNK
     Route: 048
     Dates: start: 20110124
  19. ALBUTEROL SULFATE [Concomitant]
     Dosage: 1 DF, EVERY 4-6 HRS
     Dates: start: 20100214
  20. PROMETHAZINE W/ CODEINE [Concomitant]
     Dosage: 1-2 DF, FOUR TIMES DAILY, AS NEEDED
     Route: 048
     Dates: start: 20120210
  21. RHINOCORT [Concomitant]
     Dosage: 2 SRAYS, NASAL, TWO TIMES DAILY
     Dates: start: 20120131
  22. PROMETHAZINE W/ CODEINE [Concomitant]
     Indication: COUGH
     Dosage: 1-2 DF, FOUR TIMES DAILY, AS NEEDED
     Route: 048
     Dates: start: 20110726
  23. BUTORPHANOL TARTRATE [Concomitant]
     Indication: MIGRAINE
     Dosage: 1 DF, UNK
     Route: 045
     Dates: start: 20120123
  24. COUMADIN [Concomitant]

REACTIONS (32)
  - URINARY INCONTINENCE [None]
  - GASTROOESOPHAGEAL REFLUX DISEASE [None]
  - NAUSEA [None]
  - BRONCHITIS [None]
  - ASTHMA [None]
  - MENOPAUSAL SYMPTOMS [None]
  - ANAEMIA [None]
  - PAIN [None]
  - CHRONIC OBSTRUCTIVE PULMONARY DISEASE [None]
  - STATUS MIGRAINOSUS [None]
  - SCIATICA [None]
  - AMNESIA [None]
  - HYPOGLYCAEMIA [None]
  - PHLEBITIS [None]
  - SENILE OSTEOPOROSIS [None]
  - OESOPHAGEAL DISORDER [None]
  - MIGRAINE [None]
  - HYPERLIPIDAEMIA [None]
  - INJECTION SITE EXTRAVASATION [None]
  - HYPOXIA [None]
  - EMBOLISM VENOUS [None]
  - DEEP VEIN THROMBOSIS [None]
  - RHINITIS ALLERGIC [None]
  - VITAMIN B12 DEFICIENCY [None]
  - PAIN IN EXTREMITY [None]
  - GOITRE [None]
  - SLEEP DISORDER [None]
  - ANXIETY DISORDER [None]
  - THROMBOPHLEBITIS [None]
  - OSTEONECROSIS OF JAW [None]
  - VEIN DISORDER [None]
  - MUSCULOSKELETAL DISCOMFORT [None]
